FAERS Safety Report 8649474 (Version 2)
Quarter: 2012Q4

REPORT INFORMATION
  Report Type: 
  Country: US (occurrence: US)
  Receive Date: 20120705
  Receipt Date: 20121030
  Transmission Date: 20130627
  Serious: Yes (Hospitalization, Other)
  Sender: FDA-Public Use
  Company Number: US-BAYER-2012-064839

PATIENT
  Age: 20 Year
  Sex: Female
  Weight: 88.89 kg

DRUGS (7)
  1. YAZ [Suspect]
     Indication: CONTRACEPTION
     Dosage: UNK
     Dates: start: 20060711, end: 20070307
  2. YAZ [Suspect]
     Indication: CONTRACEPTION
     Dosage: UNK
     Dates: start: 20080822, end: 20100422
  3. TOPAMAX [Concomitant]
  4. TRAMADOL [Concomitant]
     Dosage: 50 mg, UNK
  5. ONDANSETRON [Concomitant]
     Dosage: 4 mg, UNK
  6. PEPTO-BISMOL [Concomitant]
  7. IMODIUM [Concomitant]

REACTIONS (9)
  - Gallbladder disorder [None]
  - Biliary dyskinesia [None]
  - Injury [None]
  - Pain [None]
  - Anxiety [None]
  - Anhedonia [None]
  - Abdominal pain [None]
  - Nausea [None]
  - Diarrhoea [None]
